FAERS Safety Report 10438670 (Version 2)
Quarter: 2014Q3

REPORT INFORMATION
  Report Type: Spontaneous
  Country: US (occurrence: US)
  Receive Date: 20140908
  Receipt Date: 20140908
  Transmission Date: 20150326
  Serious: No
  Sender: FDA-Public Use
  Company Number: US-BRISTOL-MYERS SQUIBB COMPANY-19163609

PATIENT

DRUGS (1)
  1. ABILIFY [Suspect]
     Active Substance: ARIPIPRAZOLE
     Dosage: DOSE INCREASED ON 26JUL
     Route: 048
     Dates: start: 20130715

REACTIONS (2)
  - Aggression [Unknown]
  - Insomnia [Unknown]

NARRATIVE: CASE EVENT DATE: 2013
